FAERS Safety Report 19076771 (Version 1)
Quarter: 2021Q1

REPORT INFORMATION
  Report Type: Report from Study
  Country: JP (occurrence: JP)
  Receive Date: 20210331
  Receipt Date: 20210331
  Transmission Date: 20210420
  Serious: Yes (Other)
  Sender: FDA-Public Use
  Company Number: NVSJ2021JP004383

PATIENT
  Age: 44 Year
  Sex: Female

DRUGS (16)
  1. CONCENTRATED RED CELLS [Concomitant]
     Active Substance: HUMAN RED BLOOD CELL
     Dosage: 280 ML
     Route: 065
     Dates: start: 20190525, end: 20190621
  2. REVOLADE TAB [Suspect]
     Active Substance: ELTROMBOPAG OLAMINE
     Indication: APLASTIC ANAEMIA
     Dosage: 50 MG
     Route: 048
     Dates: start: 20190525, end: 20190607
  3. CONCENTRATED RED CELLS [Concomitant]
     Active Substance: HUMAN RED BLOOD CELL
     Dosage: TOTAL AMOUNT OF TRANSFUSION:420 ML, FREQUENCY: 2/MONTH
     Route: 065
     Dates: start: 20190914, end: 20191011
  4. CONCENTRATED RED CELLS [Concomitant]
     Active Substance: HUMAN RED BLOOD CELL
     Dosage: TOTAL AMOUNT OF TRANSFUSION:420 ML, FREQUENCY: 2/MONTH
     Route: 065
     Dates: start: 20191012, end: 20191108
  5. NEORAL [Concomitant]
     Active Substance: CYCLOSPORINE
     Indication: PRODUCT USED FOR UNKNOWN INDICATION
     Dosage: 300 MG
     Route: 048
     Dates: start: 20190525, end: 20191107
  6. CONCENTRATED RED CELLS [Concomitant]
     Active Substance: HUMAN RED BLOOD CELL
     Dosage: 280 ML
     Route: 065
     Dates: start: 20190720, end: 20190816
  7. CONCENTRATED RED CELLS [Concomitant]
     Active Substance: HUMAN RED BLOOD CELL
     Dosage: TOTAL AMOUNT OF TRANSFUSION:960 ML, FREQUENCY: 6/MONTH
     Route: 065
     Dates: start: 20191209, end: 20200103
  8. PLATELETS [Concomitant]
     Active Substance: HUMAN PLATELET, ALLOGENIC
     Indication: PRODUCT USED FOR UNKNOWN INDICATION
     Dosage: TOTAL AMOUNT OF TRANSFUSION:600 ML, FREQUENCY: 3/MONTH
     Route: 065
     Dates: start: 20191109, end: 20191208
  9. CONCENTRATED RED CELLS [Concomitant]
     Active Substance: HUMAN RED BLOOD CELL
     Dosage: TOTAL AMOUNT OF TRANSFUSION:280 ML, FREQUENCY: 1/MONTH
     Route: 065
     Dates: start: 20190817, end: 20190913
  10. CONCENTRATED RED CELLS [Concomitant]
     Active Substance: HUMAN RED BLOOD CELL
     Indication: PRODUCT USED FOR UNKNOWN INDICATION
     Dosage: TOTAL AMOUNT OF TRANSFUSION:280 ML, FREQUENCY: 2/MONTH
     Route: 065
     Dates: start: 20190330, end: 20190426
  11. CONCENTRATED RED CELLS [Concomitant]
     Active Substance: HUMAN RED BLOOD CELL
     Dosage: 280 ML
     Route: 065
     Dates: start: 20190427, end: 20190524
  12. CONCENTRATED RED CELLS [Concomitant]
     Active Substance: HUMAN RED BLOOD CELL
     Dosage: 280 ML
     Route: 065
     Dates: start: 20200104, end: 20200131
  13. PLATELETS [Concomitant]
     Active Substance: HUMAN PLATELET, ALLOGENIC
     Dosage: TOTAL AMOUNT OF TRANSFUSION:1600 ML, FREQUENCY: 8/MONTH
     Route: 065
     Dates: start: 20191209, end: 20190103
  14. CONCENTRATED RED CELLS [Concomitant]
     Active Substance: HUMAN RED BLOOD CELL
     Dosage: 280 ML
     Route: 065
     Dates: start: 20190622, end: 20190719
  15. CONCENTRATED RED CELLS [Concomitant]
     Active Substance: HUMAN RED BLOOD CELL
     Dosage: TOTAL AMOUNT OF TRANSFUSION:420 ML, FREQUENCY: 3/MONTH
     Route: 065
     Dates: start: 20191109, end: 20191208
  16. PLATELETS [Concomitant]
     Active Substance: HUMAN PLATELET, ALLOGENIC
     Dosage: TOTAL AMOUNT OF TRANSFUSION:200 ML, FREQUENCY: 1/MONTH
     Route: 065
     Dates: start: 20200104, end: 20200131

REACTIONS (3)
  - White blood cell count decreased [Unknown]
  - Cytogenetic abnormality [Unknown]
  - Platelet count decreased [Unknown]
